FAERS Safety Report 5811978-3 (Version None)
Quarter: 2008Q3

REPORT INFORMATION
  Report Type: 
  Country: None (occurrence: None)
  Receive Date: 20080716
  Receipt Date: 20080704
  Transmission Date: 20090109
  Serious: Yes (Life-Threatening, Hospitalization)
  Sender: FDA-Public Use
  Company Number: DE-VALEANT-2008VX001406

PATIENT
  Age: 19 Year
  Sex: Female
  Weight: 65 kg

DRUGS (3)
  1. DALMADORM ^ICN^ [Suspect]
     Route: 065
  2. MIRTAZAPINE [Suspect]
     Route: 065
  3. OXAZEPAM [Suspect]
     Route: 065

REACTIONS (3)
  - MULTIPLE DRUG OVERDOSE INTENTIONAL [None]
  - SOMNOLENCE [None]
  - SUICIDE ATTEMPT [None]
